FAERS Safety Report 14899917 (Version 1)
Quarter: 2018Q2

REPORT INFORMATION
  Report Type: Spontaneous
  Country: US (occurrence: US)
  Receive Date: 20180427
  Receipt Date: 20180427
  Transmission Date: 20180711
  Serious: No
  Sender: FDA-Public Use
  Company Number: None

PATIENT
  Age: 38 Year
  Sex: Female

DRUGS (1)
  1. HUMIRA [Suspect]
     Active Substance: ADALIMUMAB
     Indication: COLITIS ULCERATIVE
     Dosage: 40MG/0.8ML (STARTER KIT) 4 PENS (160MG) ON DAY 1, THEN 2 PENS (80 MG) SUBCUTANEOUSLY?
     Route: 058
     Dates: start: 20180404

REACTIONS (2)
  - Vision blurred [None]
  - Headache [None]

NARRATIVE: CASE EVENT DATE: 20180423
